FAERS Safety Report 15813963 (Version 1)
Quarter: 2019Q1

REPORT INFORMATION
  Report Type: Report from Study
  Country: US (occurrence: US)
  Receive Date: 20190111
  Receipt Date: 20190111
  Transmission Date: 20190417
  Serious: Yes (Other)
  Sender: FDA-Public Use
  Company Number: US-UCBSA-2019000388

PATIENT
  Age: 27 Year
  Sex: Female

DRUGS (5)
  1. METOPROLOL. [Concomitant]
     Active Substance: METOPROLOL
     Indication: AUTONOMIC NERVOUS SYSTEM IMBALANCE
  2. ZONEGRAN [Concomitant]
     Active Substance: ZONISAMIDE
     Indication: EPILEPSY
     Dosage: UNK
  3. TRILEPTAL [Concomitant]
     Active Substance: OXCARBAZEPINE
     Indication: EPILEPSY
     Dosage: UNK
  4. LEVETIRACETAM. [Suspect]
     Active Substance: LEVETIRACETAM
     Indication: EPILEPSY
     Dosage: UNK
  5. MIDODRINE [Concomitant]
     Active Substance: MIDODRINE
     Indication: AUTONOMIC NERVOUS SYSTEM IMBALANCE
     Dosage: UNK

REACTIONS (2)
  - Autonomic nervous system imbalance [Unknown]
  - Cardiac arrest [Unknown]
